FAERS Safety Report 25874167 (Version 1)
Quarter: 2025Q4

REPORT INFORMATION
  Report Type: Spontaneous
  Country: US (occurrence: US)
  Receive Date: 20251002
  Receipt Date: 20251002
  Transmission Date: 20260117
  Serious: No
  Sender: Harrow Health
  Company Number: US-HARROW-HAR-2025-US-01072

PATIENT

DRUGS (1)
  1. IHEEZO [Suspect]
     Active Substance: CHLOROPROCAINE HYDROCHLORIDE
     Route: 047

REACTIONS (2)
  - Eye irritation [Unknown]
  - Corneal abrasion [Unknown]
